FAERS Safety Report 24746398 (Version 1)
Quarter: 2024Q4

REPORT INFORMATION
  Report Type: Spontaneous
  Country: US (occurrence: US)
  Receive Date: 20241218
  Receipt Date: 20241218
  Transmission Date: 20250114
  Serious: No
  Sender: NOVAST LABORATORIES LTD
  Company Number: US-NOVAST LABORATORIES INC.-2024NOV000310

PATIENT

DRUGS (3)
  1. CARISOPRODOL [Suspect]
     Active Substance: CARISOPRODOL
     Indication: Sciatica
     Dosage: UNK
     Route: 065
  2. CARISOPRODOL [Suspect]
     Active Substance: CARISOPRODOL
     Dosage: WHEN ABSOLUTELY NEEDED
     Route: 065
  3. TYLENOL [Concomitant]
     Active Substance: ACETAMINOPHEN
     Indication: Product used for unknown indication
     Dosage: UNK
     Route: 065

REACTIONS (4)
  - Rash pruritic [Recovered/Resolved]
  - Abdominal discomfort [Recovered/Resolved]
  - Nausea [Unknown]
  - Product use in unapproved indication [Unknown]
